FAERS Safety Report 12624710 (Version 13)
Quarter: 2017Q2

REPORT INFORMATION
  Report Type: Spontaneous
  Country: US (occurrence: US)
  Receive Date: 20160805
  Receipt Date: 20170626
  Transmission Date: 20170830
  Serious: Yes (Hospitalization, Other)
  Sender: FDA-Public Use
  Company Number: US-PFIZER INC-2016346841

PATIENT
  Age: 80 Year
  Sex: Female
  Weight: 81.63 kg

DRUGS (8)
  1. IBRANCE [Suspect]
     Active Substance: PALBOCICLIB
     Dosage: 100 MG, CYCLIC, (DAY 1 - DAY 21 EVERY 28 DAYS)
     Route: 048
     Dates: start: 20170217
  2. IBRANCE [Suspect]
     Active Substance: PALBOCICLIB
     Indication: BREAST CANCER METASTATIC
     Dosage: 100 MG, CYCLIC (DAYS 1-21 EVERY 28 DAYS)
     Route: 048
     Dates: start: 20160704
  3. IBRANCE [Suspect]
     Active Substance: PALBOCICLIB
     Dosage: 100 MG, CYCLIC (DAYS 1-21 EVERY 28 DAYS)
     Route: 048
  4. IBRANCE [Suspect]
     Active Substance: PALBOCICLIB
     Dosage: 100 MG, CYCLIC (DAYS 1-21 EVERY 28 DAYS)
     Route: 048
     Dates: end: 2016
  5. IBRANCE [Suspect]
     Active Substance: PALBOCICLIB
     Dosage: 100 MG, CYCLIC (DAYS 1-21 EVERY 28 DAYS)
     Route: 048
  6. IBRANCE [Suspect]
     Active Substance: PALBOCICLIB
     Dosage: 100 MG, CYCLIC (DAYS 1-21 EVERY 28 DAYS)
     Route: 048
     Dates: start: 20170217
  7. IBRANCE [Suspect]
     Active Substance: PALBOCICLIB
     Dosage: 100 MG, CYCLIC (DAYS 1-21 EVERY 28 DAYS)
     Route: 048
  8. IBRANCE [Suspect]
     Active Substance: PALBOCICLIB
     Dosage: 100 MG, DAILY
     Dates: start: 20170227

REACTIONS (48)
  - Blood pressure increased [Unknown]
  - Chest discomfort [Unknown]
  - Fatigue [Unknown]
  - Myalgia [Unknown]
  - Lymphoedema [Unknown]
  - Red blood cell count decreased [Unknown]
  - Angina pectoris [Unknown]
  - Nausea [Unknown]
  - Oral pain [Unknown]
  - Decreased appetite [Unknown]
  - Pain [Unknown]
  - Throat irritation [Unknown]
  - Arthralgia [Unknown]
  - Dyspnoea [Unknown]
  - Urticaria [Recovered/Resolved]
  - Constipation [Unknown]
  - Abdominal pain upper [Unknown]
  - Abdominal pain [Unknown]
  - Dermatitis [Not Recovered/Not Resolved]
  - Fall [Unknown]
  - Head injury [Unknown]
  - Cerebral haemorrhage [Unknown]
  - Asthenia [Unknown]
  - Arthritis [Unknown]
  - Headache [Unknown]
  - Dysgeusia [Unknown]
  - Blood pressure fluctuation [Not Recovered/Not Resolved]
  - Gingival pain [Unknown]
  - Neoplasm progression [Unknown]
  - Blood pressure decreased [Unknown]
  - Noninfective gingivitis [Unknown]
  - Asthenopia [Unknown]
  - Dry skin [Unknown]
  - Sunburn [Unknown]
  - Diarrhoea [Unknown]
  - Osteoarthritis [Unknown]
  - White blood cell count decreased [Unknown]
  - Malaise [Unknown]
  - Spinal disorder [Unknown]
  - Joint injury [Unknown]
  - Drug dose omission [Unknown]
  - Pain in extremity [Unknown]
  - Dry eye [Unknown]
  - Abdominal distension [Unknown]
  - Vomiting [Unknown]
  - Blood glucose increased [Unknown]
  - Sleep disorder [Unknown]
  - Dizziness [Unknown]

NARRATIVE: CASE EVENT DATE: 2016
